FAERS Safety Report 16588420 (Version 4)
Quarter: 2025Q2

REPORT INFORMATION
  Report Type: Spontaneous
  Country: NL (occurrence: NL)
  Receive Date: 20190718
  Receipt Date: 20250624
  Transmission Date: 20250716
  Serious: Yes (Death, Hospitalization, Other)
  Sender: AUROBINDO
  Company Number: NL-AUROBINDO-AUR-APL-2019-040859

PATIENT
  Age: 54 Year
  Sex: Female

DRUGS (9)
  1. METHADONE HYDROCHLORIDE [Suspect]
     Active Substance: METHADONE HYDROCHLORIDE
     Indication: Product used for unknown indication
     Route: 065
  2. METHADONE HYDROCHLORIDE [Suspect]
     Active Substance: METHADONE HYDROCHLORIDE
     Dosage: 25 MILLIGRAM, ONCE A DAY (25 MG, QD)
     Route: 065
  3. METHADONE HYDROCHLORIDE [Suspect]
     Active Substance: METHADONE HYDROCHLORIDE
     Dosage: 45 MILLIGRAM, ONCE A DAY (45 MG, QD)
     Route: 065
  4. METHADONE HYDROCHLORIDE [Suspect]
     Active Substance: METHADONE HYDROCHLORIDE
     Route: 065
  5. RISPERIDONE [Suspect]
     Active Substance: RISPERIDONE
     Indication: Product used for unknown indication
     Route: 065
  6. RISPERIDONE [Suspect]
     Active Substance: RISPERIDONE
     Dosage: 2 MILLIGRAM, ONCE A DAY (2 MG, QD)
     Route: 065
  7. COCAINE [Suspect]
     Active Substance: COCAINE
     Indication: Product used for unknown indication
     Route: 065
  8. LORAZEPAM [Suspect]
     Active Substance: LORAZEPAM
     Indication: Catatonia
     Dosage: 4.5 MILLIGRAM, FOUR TIMES/DAY, (6 HOUR)
     Route: 065
  9. LORAZEPAM [Suspect]
     Active Substance: LORAZEPAM
     Route: 065

REACTIONS (44)
  - Death [Fatal]
  - Toxic leukoencephalopathy [Fatal]
  - Catatonia [Fatal]
  - Toxicity to various agents [Fatal]
  - Drug withdrawal syndrome [Fatal]
  - Hypotension [Fatal]
  - Neuroleptic malignant syndrome [Fatal]
  - Renal impairment [Fatal]
  - Alanine aminotransferase increased [Fatal]
  - Hypotonia [Fatal]
  - Unresponsive to stimuli [Fatal]
  - Stupor [Fatal]
  - Dysphoria [Fatal]
  - Mutism [Fatal]
  - Muscle rigidity [Fatal]
  - Aspartate aminotransferase increased [Fatal]
  - Pupillary light reflex tests abnormal [Fatal]
  - Tachycardia [Fatal]
  - C-reactive protein increased [Fatal]
  - Delirium [Fatal]
  - Restlessness [Fatal]
  - Loss of consciousness [Fatal]
  - Influenza like illness [Fatal]
  - Memory impairment [Fatal]
  - Lung infiltration [Fatal]
  - Metabolic encephalopathy [Fatal]
  - Hypertension [Fatal]
  - Disorientation [Fatal]
  - Blood creatine phosphokinase increased [Fatal]
  - Aggression [Fatal]
  - General physical health deterioration [Fatal]
  - Apraxia [Fatal]
  - Pyrexia [Fatal]
  - Hyporeflexia [Fatal]
  - Mental impairment [Fatal]
  - Tachypnoea [Fatal]
  - Hypoxia [Fatal]
  - Echolalia [Fatal]
  - Bradypnoea [Fatal]
  - Pneumonia [Fatal]
  - Septic shock [Fatal]
  - Pulmonary sepsis [Fatal]
  - Confusional state [Fatal]
  - Abnormal behaviour [Fatal]
